FAERS Safety Report 8895737 (Version 1)
Quarter: 2012Q4

REPORT INFORMATION
  Report Type: 
  Country: JP (occurrence: JP)
  Receive Date: 20121108
  Receipt Date: 20121108
  Transmission Date: 20130627
  Serious: Yes (Hospitalization)
  Sender: FDA-Public Use
  Company Number: JP-009507513-1206USA02394

PATIENT
  Age: 65 Year
  Sex: Female

DRUGS (2)
  1. FOSAMAC TABLETS 35MG [Suspect]
     Indication: OSTEOPOROSIS
     Dosage: 35 mg, QW
     Route: 048
     Dates: start: 201008, end: 201112
  2. BONALON [Suspect]
     Indication: OSTEOPOROSIS
     Dosage: UNK mg, UNK
     Route: 048
     Dates: end: 201008

REACTIONS (2)
  - Atypical femur fracture [Unknown]
  - Fall [Unknown]
